FAERS Safety Report 4971807-7 (Version None)
Quarter: 2006Q2

REPORT INFORMATION
  Report Type: 
  Country: None (occurrence: None)
  Receive Date: 20060407
  Receipt Date: 20060329
  Transmission Date: 20061013
  Serious: Yes (Hospitalization)
  Sender: FDA-Public Use
  Company Number: 060037

PATIENT
  Sex: Male

DRUGS (1)
  1. HALFLYTELY [Suspect]
     Indication: COLONOSCOPY
     Dosage: 20MG/2L, 1X, PO
     Route: 048

REACTIONS (3)
  - COLITIS ISCHAEMIC [None]
  - MUSCLE SPASMS [None]
  - RECTAL HAEMORRHAGE [None]
